FAERS Safety Report 22626795 (Version 3)
Quarter: 2023Q4

REPORT INFORMATION
  Report Type: Spontaneous
  Country: RO (occurrence: RO)
  Receive Date: 20230622
  Receipt Date: 20231116
  Transmission Date: 20240110
  Serious: Yes (Death, Other)
  Sender: FDA-Public Use
  Company Number: RO-CELLTRION INC.-2023RO012537

PATIENT

DRUGS (4)
  1. TRASTUZUMAB [Suspect]
     Active Substance: TRASTUZUMAB
     Indication: HER2 positive breast cancer
     Dosage: UNK, QWK
     Route: 037
  2. TRASTUZUMAB [Suspect]
     Active Substance: TRASTUZUMAB
     Indication: Metastases to liver
  3. LETROZOLE [Concomitant]
     Active Substance: LETROZOLE
  4. PACLITAXEL [Concomitant]
     Active Substance: PACLITAXEL
     Dosage: UNK UNK, QWK

REACTIONS (7)
  - Death [Fatal]
  - Paraparesis [Recovered/Resolved]
  - Hemiparesis [Recovered/Resolved]
  - Generalised tonic-clonic seizure [Recovered/Resolved]
  - Metastases to central nervous system [Unknown]
  - Neuromuscular toxicity [Recovered/Resolved]
  - Off label use [Unknown]

NARRATIVE: CASE EVENT DATE: 20190101
